FAERS Safety Report 5017188-4 (Version None)
Quarter: 2006Q2

REPORT INFORMATION
  Report Type: 
  Country: None (occurrence: None)
  Receive Date: 20060414
  Receipt Date: 20060126
  Transmission Date: 20061013
  Serious: No
  Sender: FDA-Public Use
  Company Number: 2006SP000484

PATIENT
  Age: 47 Year
  Sex: Female
  Weight: 95.2554 kg

DRUGS (6)
  1. LUNESTA [Suspect]
     Indication: INSOMNIA
     Dosage: 2 MG;HS;ORAL
     Route: 048
     Dates: start: 20060125, end: 20060131
  2. GLUCOPHAGE [Concomitant]
  3. PIOGLITAZONE HCL [Concomitant]
  4. ATORVASTATIN CALCIUM [Concomitant]
  5. ASPIRIN [Concomitant]
  6. ORAL CONTRACEPTIVE NOS [Concomitant]

REACTIONS (4)
  - DRUG INEFFECTIVE [None]
  - DYSGEUSIA [None]
  - HEADACHE [None]
  - MIDDLE INSOMNIA [None]
